FAERS Safety Report 16557649 (Version 1)
Quarter: 2019Q3

REPORT INFORMATION
  Report Type: Spontaneous
  Country: IT (occurrence: IT)
  Receive Date: 20190711
  Receipt Date: 20190711
  Transmission Date: 20191004
  Serious: Yes (Hospitalization)
  Sender: FDA-Public Use
  Company Number: IT-SUN PHARMACEUTICAL INDUSTRIES LTD-2019RR-213345

PATIENT
  Age: 39 Year
  Sex: Male

DRUGS (3)
  1. LEVOFOLENE 175 MG POLVERE PER SOLUZIONE PER INFUSIONE [Concomitant]
     Indication: ADENOCARCINOMA OF COLON
     Dosage: 270 MILLIGRAM, UNK
     Route: 042
     Dates: start: 20190401, end: 20190515
  2. OXALIPLATINO SUN 5 MG/ML, CONCENTRATO PER SOLUZIONE PER INFUSIONE [Suspect]
     Active Substance: OXALIPLATIN
     Indication: ADENOCARCINOMA OF COLON
     Dosage: CYCLICAL
     Route: 042
     Dates: start: 20190401, end: 20190515
  3. FLUOROURACILE TEVA 5 G/100 ML SOLUZIONE PER INFUSIONE [Concomitant]
     Active Substance: FLUOROURACIL
     Indication: ADENOCARCINOMA OF COLON
     Dosage: 2700 MILLIGRAM, UNK
     Route: 042
     Dates: start: 20190401, end: 20190515

REACTIONS (3)
  - Thrombocytopenia [Recovered/Resolved]
  - Bone marrow toxicity [Recovered/Resolved]
  - Hyperpyrexia [Recovered/Resolved]

NARRATIVE: CASE EVENT DATE: 20190523
